FAERS Safety Report 6148218-4 (Version None)
Quarter: 2009Q2

REPORT INFORMATION
  Report Type: 
  Country: None (occurrence: None)
  Receive Date: 20090408
  Receipt Date: 20090402
  Transmission Date: 20091009
  Serious: Yes (Other)
  Sender: FDA-Public Use
  Company Number: PHHY2009JP09627

PATIENT
  Sex: Male
  Weight: 48.1 kg

DRUGS (11)
  1. ICL670A ICL+DISTAB [Suspect]
     Indication: IRON OVERLOAD
     Dosage: 1000 MG DAILY
     Route: 048
     Dates: start: 20080922, end: 20090201
  2. ICL670A ICL+DISTAB [Suspect]
     Indication: APLASTIC ANAEMIA
     Dosage: 1000 MG DAILY 5 DAYS A WEEK
     Route: 048
     Dates: start: 20090202
  3. DESFERAL [Suspect]
     Dosage: 1000 MG DAILY
     Dates: start: 20070421, end: 20080512
  4. NEORAL [Suspect]
  5. PRIMOBOLAN [Concomitant]
     Dosage: 20 MG
     Route: 048
     Dates: start: 20080922
  6. BAKTAR [Concomitant]
     Dosage: 1 DF
     Route: 048
     Dates: start: 20080922
  7. GASTER D [Concomitant]
     Dosage: 10 MG
     Route: 048
     Dates: start: 20090122
  8. CIPROXAN [Concomitant]
     Dosage: 200 MG
     Route: 048
     Dates: start: 20081105
  9. CIPROXAN [Concomitant]
     Dosage: 200 MG
     Route: 048
     Dates: end: 20090114
  10. MAXIPIME [Concomitant]
     Dosage: 1 G
     Route: 042
     Dates: start: 20090108, end: 20090108
  11. BLOOD TRANSFUSION, AUXILIARY PRODUCTS [Concomitant]

REACTIONS (6)
  - C-REACTIVE PROTEIN INCREASED [None]
  - GASTROINTESTINAL DISORDER [None]
  - HEPATIC FUNCTION ABNORMAL [None]
  - RENAL IMPAIRMENT [None]
  - UPPER RESPIRATORY TRACT INFECTION [None]
  - URINARY TRACT INFECTION [None]
